FAERS Safety Report 9997173 (Version 1)
Quarter: 2014Q1

REPORT INFORMATION
  Report Type: Spontaneous
  Country: US (occurrence: US)
  Receive Date: 20140311
  Receipt Date: 20140311
  Transmission Date: 20141002
  Serious: No
  Sender: FDA-Public Use
  Company Number: US-TEVA-467630USA

PATIENT
  Age: 41 Year
  Sex: Female
  Weight: 47.22 kg

DRUGS (1)
  1. PARAGARD 380A [Suspect]
     Indication: CONTRACEPTION
     Route: 015
     Dates: start: 20140131

REACTIONS (5)
  - Pollakiuria [Unknown]
  - Metrorrhagia [Recovered/Resolved]
  - Abdominal pain [Unknown]
  - Dyspareunia [Unknown]
  - Device expulsion [Unknown]
